FAERS Safety Report 18190931 (Version 1)
Quarter: 2020Q3

REPORT INFORMATION
  Report Type: Other
  Country: FR (occurrence: FR)
  Receive Date: 20200825
  Receipt Date: 20200825
  Transmission Date: 20201103
  Serious: Yes (Life-Threatening, Other)
  Sender: FDA-Public Use
  Company Number: FR-DENTSPLY-2020SCDP000264

PATIENT
  Age: 63 Year
  Sex: Female
  Weight: 61 kg

DRUGS (3)
  1. MEPIVACAINE HCL [Suspect]
     Active Substance: MEPIVACAINE HYDROCHLORIDE
     Indication: NERVE BLOCK
     Dosage: 170 MILLIGRAM, TOTAL, CARBOCAINE 20 MG/ML, SOLUTION INJECTABLE
     Route: 053
     Dates: start: 20200718, end: 20200718
  2. ROPIVACAINE KABI [Suspect]
     Active Substance: ROPIVACAINE
     Indication: NERVE BLOCK
     Dosage: 51 MILLIGRAM, TOTAL, ROPIVACAINE KABI 10 MG / ML, SOLUTION FOR INJECTION IN AMPOULE
     Route: 053
     Dates: start: 20200718, end: 20200718
  3. AUGMENTIN [Suspect]
     Active Substance: AMOXICILLIN\CLAVULANATE POTASSIUM
     Indication: PROPHYLAXIS
     Dosage: 15 MILLILITER, TOTAL
     Route: 042
     Dates: start: 20200718, end: 20200718

REACTIONS (2)
  - Shock [Recovered/Resolved]
  - Coma [Recovered/Resolved]

NARRATIVE: CASE EVENT DATE: 20200718
